FAERS Safety Report 8770094 (Version 1)
Quarter: 2012Q4

REPORT INFORMATION
  Report Type: Report from Study
  Country: CA (occurrence: CA)
  Receive Date: 20120906
  Receipt Date: 20120906
  Transmission Date: 20130627
  Serious: Yes (Hospitalization)
  Sender: FDA-Public Use
  Company Number: CA-JNJFOC-20120814223

PATIENT
  Age: 61 Year
  Sex: Female
  Weight: 92.2 kg

DRUGS (1)
  1. REMICADE [Suspect]
     Indication: PSORIATIC ARTHROPATHY
     Route: 042
     Dates: start: 20120216

REACTIONS (2)
  - Gastroenteritis [Unknown]
  - Dehydration [Unknown]
